FAERS Safety Report 24253459 (Version 1)
Quarter: 2024Q3

REPORT INFORMATION
  Report Type: Report from Study
  Country: DE (occurrence: DE)
  Receive Date: 20240827
  Receipt Date: 20240827
  Transmission Date: 20241016
  Serious: Yes (Hospitalization)
  Sender: BAXTER
  Company Number: DE-BAXTER-2024BAX023676

PATIENT
  Age: 66 Year
  Sex: Male

DRUGS (7)
  1. AMINO ACIDS\DEXTROSE\ELECTROLYTES NOS\SOYBEAN OIL [Suspect]
     Active Substance: AMINO ACIDS\DEXTROSE\ELECTROLYTES NOS\SOYBEAN OIL
     Indication: Decreased appetite
     Dosage: 1085 ML (MILLILITRE) 1 TIME PER DAY
     Route: 042
     Dates: start: 20240126
  2. AMINO ACIDS\DEXTROSE\ELECTROLYTES NOS\SOYBEAN OIL [Suspect]
     Active Substance: AMINO ACIDS\DEXTROSE\ELECTROLYTES NOS\SOYBEAN OIL
     Indication: Oesophageal carcinoma
  3. CERNEVIT [Suspect]
     Active Substance: VITAMINS
     Indication: Decreased appetite
     Dosage: 750 MG (MILLIGRAM) 1 TIME PER DAY (VOLUME OF BOTTLE= 10 ML)
     Route: 042
     Dates: start: 20240126
  4. CERNEVIT [Suspect]
     Active Substance: VITAMINS
     Indication: Oesophageal carcinoma
  5. ELECTROLYTES NOS\MINERALS [Suspect]
     Active Substance: ELECTROLYTES NOS\MINERALS
     Indication: Decreased appetite
     Dosage: (MANUFACTURER: LABORATOIRE AGUETTANT S.A.S.) 10 ML (MILLILITRE) 1 TIME PER DAY
     Route: 042
     Dates: start: 20240126
  6. ELECTROLYTES NOS\MINERALS [Suspect]
     Active Substance: ELECTROLYTES NOS\MINERALS
     Indication: Oesophageal carcinoma
  7. UNSPECIFIED INGREDIENT [Suspect]
     Active Substance: UNSPECIFIED INGREDIENT
     Route: 065

REACTIONS (2)
  - Infusion site erythema [Unknown]
  - Infusion site discharge [Unknown]

NARRATIVE: CASE EVENT DATE: 20240820
